FAERS Safety Report 17476311 (Version 1)
Quarter: 2020Q1

REPORT INFORMATION
  Report Type: Report from Study
  Country: BR (occurrence: BR)
  Receive Date: 20200228
  Receipt Date: 20200228
  Transmission Date: 20200409
  Serious: Yes (Other)
  Sender: FDA-Public Use
  Company Number: BR-JNJFOC-20191027739

PATIENT
  Sex: Female

DRUGS (10)
  1. SIMPONI [Suspect]
     Active Substance: GOLIMUMAB
     Indication: RHEUMATOID ARTHRITIS
     Dosage: 1 YEAR AGO (REPORTED BY THE PATIENT)
     Route: 058
     Dates: start: 20180830
  2. METHOTREXATE. [Concomitant]
     Active Substance: METHOTREXATE
  3. PROLOPA [Concomitant]
     Active Substance: BENSERAZIDE\LEVODOPA
  4. PANTOPRAZOLE [Concomitant]
     Active Substance: PANTOPRAZOLE
  5. AZUKON [Concomitant]
     Active Substance: GLICLAZIDE
  6. ATORVASTATIN [Concomitant]
     Active Substance: ATORVASTATIN
  7. HYDROCHLOROTHIAZIDE. [Concomitant]
     Active Substance: HYDROCHLOROTHIAZIDE
  8. LOSARTAN POTASSIUM. [Concomitant]
     Active Substance: LOSARTAN POTASSIUM
  9. GLICLAZIDE [Concomitant]
     Active Substance: GLICLAZIDE
  10. SELOZOK [Concomitant]
     Active Substance: METOPROLOL SUCCINATE

REACTIONS (2)
  - Sinusitis [Recovering/Resolving]
  - Parkinson^s disease [Unknown]
